FAERS Safety Report 12973438 (Version 3)
Quarter: 2016Q4

REPORT INFORMATION
  Report Type: Report from Study
  Country: GB (occurrence: GB)
  Receive Date: 20161124
  Receipt Date: 20161215
  Transmission Date: 20170207
  Serious: Yes (Other)
  Sender: FDA-Public Use
  Company Number: GB-JNJFOC-20161124330

PATIENT
  Age: 89 Year
  Sex: Female

DRUGS (1)
  1. IMBRUVICA [Suspect]
     Active Substance: IBRUTINIB
     Indication: CHRONIC LYMPHOCYTIC LEUKAEMIA
     Route: 048
     Dates: start: 20160929

REACTIONS (5)
  - Eye haemorrhage [Unknown]
  - Ocular retrobulbar haemorrhage [Unknown]
  - Fatigue [Unknown]
  - Feeling abnormal [Unknown]
  - Head injury [Unknown]

NARRATIVE: CASE EVENT DATE: 2016
